FAERS Safety Report 6915638-7 (Version None)
Quarter: 2010Q3

REPORT INFORMATION
  Report Type: 
  Country: None (occurrence: None)
  Receive Date: 20100810
  Receipt Date: 20100728
  Transmission Date: 20110219
  Serious: Yes (Hospitalization)
  Sender: FDA-Public Use
  Company Number: FR-JNJFOC-20100801798

PATIENT
  Sex: Male

DRUGS (8)
  1. IXPRIM [Suspect]
     Indication: PRODUCT USED FOR UNKNOWN INDICATION
     Route: 048
  2. KARDEGIC [Concomitant]
  3. RAMIPRIL [Concomitant]
  4. RABEPRAZOLE SODIUM [Concomitant]
  5. PRAVASTATIN [Concomitant]
  6. DOLIPRANE [Concomitant]
  7. FORTIMEL [Concomitant]
  8. FORLAX [Concomitant]

REACTIONS (4)
  - CONFUSIONAL STATE [None]
  - DISORIENTATION [None]
  - HALLUCINATION [None]
  - RESTLESSNESS [None]
